FAERS Safety Report 23251323 (Version 1)
Quarter: 2023Q4

REPORT INFORMATION
  Report Type: Report from Study
  Country: FR (occurrence: FR)
  Receive Date: 20231201
  Receipt Date: 20231201
  Transmission Date: 20240110
  Serious: Yes (Life-Threatening)
  Sender: FDA-Public Use
  Company Number: FR-SA-SAC20231130000445

PATIENT
  Age: 79 Year
  Sex: Female
  Weight: 52 kg

DRUGS (23)
  1. ISATUXIMAB [Suspect]
     Active Substance: ISATUXIMAB
     Indication: Plasma cell myeloma
     Dosage: 486 MG
     Route: 065
     Dates: start: 20220113, end: 20220113
  2. ISATUXIMAB [Suspect]
     Active Substance: ISATUXIMAB
     Dosage: 525 MG
     Route: 065
     Dates: start: 20230223, end: 20230223
  3. ISATUXIMAB [Suspect]
     Active Substance: ISATUXIMAB
     Dosage: 525 MG
     Route: 065
     Dates: start: 20230817, end: 20230817
  4. ISATUXIMAB [Suspect]
     Active Substance: ISATUXIMAB
     Dosage: 525 MG
     Route: 065
     Dates: start: 20230712, end: 20230712
  5. ISATUXIMAB [Suspect]
     Active Substance: ISATUXIMAB
     Dosage: 525 MG
     Route: 065
     Dates: start: 20230609, end: 20230609
  6. LENALIDOMIDE [Suspect]
     Active Substance: LENALIDOMIDE
     Indication: Plasma cell myeloma
     Dosage: 25 MG
     Route: 065
     Dates: start: 20220113, end: 20220113
  7. LENALIDOMIDE [Suspect]
     Active Substance: LENALIDOMIDE
     Dosage: 25 MG
     Route: 065
     Dates: start: 20230315, end: 20230315
  8. LENALIDOMIDE [Suspect]
     Active Substance: LENALIDOMIDE
     Dosage: 5 MG
     Route: 065
     Dates: start: 20230906, end: 20230906
  9. LENALIDOMIDE [Suspect]
     Active Substance: LENALIDOMIDE
     Dosage: 10 MG
     Route: 065
     Dates: start: 20230801, end: 20230801
  10. LENALIDOMIDE [Suspect]
     Active Substance: LENALIDOMIDE
     Dosage: 15 MG
     Route: 065
     Dates: start: 20230629, end: 20230629
  11. BORTEZOMIB [Suspect]
     Active Substance: BORTEZOMIB
     Indication: Plasma cell myeloma
     Dosage: 1.93 MG
     Route: 065
     Dates: start: 20220113, end: 20220113
  12. BORTEZOMIB [Suspect]
     Active Substance: BORTEZOMIB
     Dosage: 2 MG
     Route: 065
     Dates: start: 20230309, end: 20230309
  13. BORTEZOMIB [Suspect]
     Active Substance: BORTEZOMIB
     Dosage: 2 MG
     Route: 065
     Dates: start: 20230623, end: 20230623
  14. DEXAMETHASONE [Suspect]
     Active Substance: DEXAMETHASONE
     Indication: Plasma cell myeloma
     Dosage: 20 MG
     Route: 065
     Dates: start: 20220113, end: 20220113
  15. DEXAMETHASONE [Suspect]
     Active Substance: DEXAMETHASONE
     Dosage: 20 MG
     Route: 065
     Dates: start: 20221215, end: 20221215
  16. CARVEDILOL [Concomitant]
     Active Substance: CARVEDILOL
     Indication: Hypertension
     Dosage: 7.5 MG
     Route: 065
     Dates: start: 2017
  17. PRAVASTATIN [Concomitant]
     Active Substance: PRAVASTATIN
     Dosage: 10 MG
     Route: 065
     Dates: start: 2021
  18. LORAZEPAM [Concomitant]
     Active Substance: LORAZEPAM
     Indication: Anxiety
     Dosage: 0.5 MG
     Route: 065
     Dates: start: 2004
  19. VALACYCLOVIR HYDROCHLORIDE [Concomitant]
     Active Substance: VALACYCLOVIR HYDROCHLORIDE
     Dosage: 1000 MG
     Route: 065
  20. BACTRIM [Concomitant]
     Active Substance: SULFAMETHOXAZOLE\TRIMETHOPRIM
     Indication: Infection prophylaxis
     Dosage: 3 DF, QW
     Route: 065
  21. APIXABAN [Concomitant]
     Active Substance: APIXABAN
     Indication: Prophylaxis
     Dosage: 5 MG
     Route: 065
     Dates: start: 20220112
  22. OROCAL D [Concomitant]
     Indication: Prophylaxis
     Dosage: 1000 MG
     Route: 065
     Dates: start: 2013
  23. NASONEX [Concomitant]
     Active Substance: MOMETASONE FUROATE
     Dosage: UNK UNK, BID
     Route: 065

REACTIONS (4)
  - Neutropenia [Recovered/Resolved]
  - Neutropenia [Recovered/Resolved]
  - Neutropenia [Recovered/Resolved]
  - Neutropenia [Recovered/Resolved]

NARRATIVE: CASE EVENT DATE: 20230321
